FAERS Safety Report 6102203-7 (Version None)
Quarter: 2009Q1

REPORT INFORMATION
  Report Type: 
  Country: None (occurrence: None)
  Receive Date: 20090304
  Receipt Date: 20090227
  Transmission Date: 20090719
  Serious: Yes (Hospitalization, Other)
  Sender: FDA-Public Use
  Company Number: FI-BRISTOL-MYERS SQUIBB COMPANY-14514988

PATIENT
  Age: 76 Year
  Sex: Male

DRUGS (6)
  1. EFAVIRENZ [Suspect]
     Indication: HIV INFECTION
     Dosage: INTERRUPTED ON 14NOV08
     Route: 048
     Dates: start: 20081029
  2. ABACAVIR SULFATE/LAMIVUDINE [Suspect]
     Indication: HIV INFECTION
     Dosage: INTERRUPTED ON 14NOV08,1DF = 600/300MG
     Route: 048
     Dates: start: 20081029
  3. MAREVAN [Suspect]
     Indication: ATRIAL FIBRILLATION
     Dosage: INTERRUPTED ON 14NOV08 AND RESTARTED ON 10DEC08 AT 3MG/DAILY
     Route: 048
  4. DIGOXIN [Concomitant]
  5. TENOX [Concomitant]
  6. DIOVAN [Concomitant]

REACTIONS (3)
  - EPISTAXIS [None]
  - HAEMOGLOBIN DECREASED [None]
  - INTERNATIONAL NORMALISED RATIO INCREASED [None]
